FAERS Safety Report 5642739-6 (Version None)
Quarter: 2008Q1

REPORT INFORMATION
  Report Type: 
  Country: None (occurrence: None)
  Receive Date: 20080226
  Receipt Date: 20080215
  Transmission Date: 20080703
  Serious: Yes (Other)
  Sender: FDA-Public Use
  Company Number: FR-JNJFOC-20080203748

PATIENT

DRUGS (1)
  1. DACOGEN [Suspect]
     Indication: ACCIDENTAL EXPOSURE
     Dosage: 33 MG, OTHER
     Route: 050

REACTIONS (1)
  - ACCIDENTAL EXPOSURE [None]
